FAERS Safety Report 8511114-9 (Version None)
Quarter: 2012Q3

REPORT INFORMATION
  Report Type: 
  Country: None (occurrence: None)
  Receive Date: 20120716
  Receipt Date: 20120705
  Transmission Date: 20120928
  Serious: Yes (Other)
  Sender: FDA-Public Use
  Company Number: JP-JNJFOC-20120705351

PATIENT
  Sex: Male

DRUGS (2)
  1. DORIPENEM MONOHYDRATE [Suspect]
     Indication: CHOLECYSTITIS
     Dosage: 2 MONTHS
     Route: 041
     Dates: start: 20120601
  2. DORIPENEM MONOHYDRATE [Suspect]
     Route: 041

REACTIONS (2)
  - PLATELET COUNT INCREASED [None]
  - GALLBLADDER PERFORATION [None]
